FAERS Safety Report 9254198 (Version 1)
Quarter: 2013Q2

REPORT INFORMATION
  Report Type: Spontaneous
  Country: PL (occurrence: PL)
  Receive Date: 20130425
  Receipt Date: 20130425
  Transmission Date: 20140414
  Serious: Yes (Other)
  Sender: FDA-Public Use
  Company Number: PHHY2013PL038850

PATIENT
  Age: 73 Year
  Sex: 0

DRUGS (7)
  1. NEORAL [Suspect]
     Indication: IMMUNOSUPPRESSION
     Dosage: 200 MG, PER DAY
  2. NEORAL [Suspect]
     Dosage: 50 MG, PER DAY
  3. NEORAL [Suspect]
     Dosage: 200 MG, PER DAY
  4. EVEROLIMUS [Suspect]
     Indication: IMMUNOSUPPRESSION
     Dosage: 1.5 MG, PER DAY
  5. CELLCEPT [Concomitant]
     Dosage: 1000 MG, PER DAY
  6. AZATHIOPRINE [Concomitant]
     Dosage: 50 MG, UNK
  7. STEROIDS NOS [Concomitant]
     Dosage: 5 MG, PER DAY

REACTIONS (6)
  - Myocardial infarction [Unknown]
  - Diastolic dysfunction [Unknown]
  - Pulmonary embolism [Unknown]
  - Lower respiratory tract inflammation [Unknown]
  - Blood creatinine increased [Unknown]
  - Malaise [Unknown]
